FAERS Safety Report 9541734 (Version 2)
Quarter: 2013Q4

REPORT INFORMATION
  Report Type: Spontaneous
  Country: KR (occurrence: None)
  Receive Date: 20130918
  Receipt Date: 20131015
  Transmission Date: 20140711
  Serious: Yes (Hospitalization, Other)
  Sender: FDA-Public Use
  Company Number: 2013KR002484

PATIENT
  Age: 42 Year
  Sex: Female
  Weight: 54 kg

DRUGS (1)
  1. PONATINIB [Suspect]
     Indication: CHRONIC MYELOID LEUKAEMIA
     Route: 048
     Dates: start: 20110131, end: 20130814

REACTIONS (16)
  - Hemiparesis [None]
  - Pyrexia [None]
  - Pancreatitis acute [None]
  - Abasia [None]
  - Horner^s syndrome [None]
  - Hyporeflexia [None]
  - Hypertension [None]
  - Hepatomegaly [None]
  - Faecal volume increased [None]
  - Ovarian cyst [None]
  - Hydronephrosis [None]
  - Bladder dilatation [None]
  - Neurogenic bladder [None]
  - Intervertebral disc protrusion [None]
  - Leukaemic infiltration [None]
  - Spinal cord oedema [None]
